FAERS Safety Report 5038959-4 (Version None)
Quarter: 2006Q2

REPORT INFORMATION
  Report Type: 
  Country: None (occurrence: None)
  Receive Date: 20060628
  Receipt Date: 20060628
  Transmission Date: 20061013
  Serious: Yes (Death)
  Sender: FDA-Public Use
  Company Number: None

PATIENT
  Age: 50 Year
  Sex: Male
  Weight: 61.7 kg

DRUGS (7)
  1. LONAFARNIB [Suspect]
     Indication: ADENOCARCINOMA
     Dosage: 150 MG PO BID
     Route: 048
     Dates: start: 20060615, end: 20060625
  2. DOCETAXEL [Suspect]
     Dosage: 36 MG/M2
     Dates: start: 20060614
  3. DOCETAXEL [Suspect]
     Dosage: 36 MG/M2
     Dates: start: 20060622
  4. DURAGESIC-100 [Concomitant]
  5. DECADRON [Concomitant]
  6. SYNTHROID [Concomitant]
  7. ZOFRAN [Concomitant]

REACTIONS (8)
  - CARDIAC ARREST [None]
  - DIARRHOEA [None]
  - HYPOTENSION [None]
  - HYPOVOLAEMIA [None]
  - NAUSEA [None]
  - PANCYTOPENIA [None]
  - SEPSIS [None]
  - VOMITING [None]
